FAERS Safety Report 5743610-1 (Version None)
Quarter: 2008Q2

REPORT INFORMATION
  Report Type: 
  Country: None (occurrence: None)
  Receive Date: 20080519
  Receipt Date: 20080519
  Transmission Date: 20081010
  Serious: Yes (Other)
  Sender: FDA-Public Use
  Company Number: None

PATIENT
  Age: 29 Year
  Sex: Female
  Weight: 69 kg

DRUGS (1)
  1. DEPO-PROVERA [Suspect]
     Indication: CONTRACEPTION
     Dosage: ONE INJECTION THREE MONTHLY; ONE YEAR FROM 2002

REACTIONS (11)
  - ARTHRITIS [None]
  - DEPRESSION [None]
  - DIZZINESS [None]
  - LICHEN SCLEROSUS [None]
  - LOSS OF LIBIDO [None]
  - METRORRHAGIA [None]
  - NIGHT SWEATS [None]
  - PREMATURE MENOPAUSE [None]
  - STRESS [None]
  - UNEVALUABLE EVENT [None]
  - WEIGHT INCREASED [None]
